FAERS Safety Report 25777084 (Version 2)
Quarter: 2025Q3

REPORT INFORMATION
  Report Type: Spontaneous
  Country: US (occurrence: US)
  Receive Date: 20250909
  Receipt Date: 20250930
  Transmission Date: 20251021
  Serious: Yes (Hospitalization, Other)
  Sender: BAXTER
  Company Number: US-BAXTER-2025BAX020659

PATIENT
  Age: 61 Year
  Sex: Male
  Weight: 124.2 kg

DRUGS (8)
  1. MYXREDLIN [Suspect]
     Active Substance: INSULIN HUMAN
     Indication: Type 2 diabetes mellitus
     Route: 041
     Dates: start: 20250827, end: 20250827
  2. MYXREDLIN [Suspect]
     Active Substance: INSULIN HUMAN
     Route: 041
     Dates: start: 20250828, end: 20250828
  3. MYXREDLIN [Suspect]
     Active Substance: INSULIN HUMAN
     Route: 041
     Dates: start: 20250828
  4. CEFEPIME [Suspect]
     Active Substance: CEFEPIME HYDROCHLORIDE
     Route: 065
  5. METRONIDAZOLE [Suspect]
     Active Substance: METRONIDAZOLE
     Route: 065
  6. HYDROCORTISONE [Concomitant]
     Active Substance: HYDROCORTISONE
     Route: 065
     Dates: start: 20250827
  7. ANIDULAFUNGIN [Concomitant]
     Active Substance: ANIDULAFUNGIN
     Route: 065
  8. LINEZOLID [Concomitant]
     Active Substance: LINEZOLID
     Route: 065

REACTIONS (1)
  - Drug ineffective [Recovered/Resolved]

NARRATIVE: CASE EVENT DATE: 20250827
